FAERS Safety Report 5826903-9 (Version None)
Quarter: 2008Q3

REPORT INFORMATION
  Report Type: 
  Country: None (occurrence: None)
  Receive Date: 20080730
  Receipt Date: 20080724
  Transmission Date: 20090109
  Serious: Yes (Death, Other)
  Sender: FDA-Public Use
  Company Number: US-BAYER-200828960NA

PATIENT

DRUGS (1)
  1. TRASYLOL [Suspect]

REACTIONS (1)
  - DEATH [None]
